FAERS Safety Report 7331969-3 (Version None)
Quarter: 2011Q1

REPORT INFORMATION
  Report Type: 
  Country: None (occurrence: None)
  Receive Date: 20110228
  Receipt Date: 20110228
  Transmission Date: 20110831
  Serious: Yes (Other)
  Sender: FDA-Public Use
  Company Number: None

PATIENT
  Sex: Female

DRUGS (7)
  1. SPIRIVA [Concomitant]
  2. CARDIZEM [Concomitant]
  3. SYNTHROID [Concomitant]
  4. POTASSIUM [Concomitant]
  5. REVATIO [Suspect]
     Dosage: 20MG TID PO
     Route: 048
     Dates: start: 20110121
  6. PANTOPRAZOLE [Concomitant]
  7. ATENOLOL [Concomitant]

REACTIONS (1)
  - DEAFNESS [None]
